FAERS Safety Report 4367399-6 (Version None)
Quarter: 2004Q2

REPORT INFORMATION
  Report Type: 
  Country: None (occurrence: None)
  Receive Date: 20040601
  Receipt Date: 20040517
  Transmission Date: 20050107
  Serious: Yes (Other)
  Sender: FDA-Public Use
  Company Number: US-BRISTOL-MYERS SQUIBB COMPANY-12590956

PATIENT
  Sex: Male

DRUGS (2)
  1. ERBITUX [Suspect]
     Indication: COLORECTAL CANCER
     Dosage: LOADING DOSE
     Route: 042
     Dates: start: 20040510, end: 20040510
  2. BENADRYL [Concomitant]
     Indication: PREMEDICATION
     Dates: start: 20040510, end: 20040510

REACTIONS (4)
  - DISORIENTATION [None]
  - DYSPNOEA [None]
  - FLUSHING [None]
  - SYNCOPE [None]
